FAERS Safety Report 5038837-0 (Version None)
Quarter: 2006Q2

REPORT INFORMATION
  Report Type: 
  Country: None (occurrence: None)
  Receive Date: 20060629
  Receipt Date: 20060621
  Transmission Date: 20061013
  Serious: Yes (Other)
  Sender: FDA-Public Use
  Company Number: 2006AC01199

PATIENT
  Age: 78 Year
  Sex: Male

DRUGS (3)
  1. OMEPRAZOLE [Suspect]
     Indication: GASTROOESOPHAGEAL REFLUX DISEASE
     Dosage: TAKEN FOR 16 WEEKS AT TIME OF DIAGNOSIS.
  2. GLICLAZIDE [Concomitant]
  3. IRON SULPHATE [Concomitant]

REACTIONS (9)
  - ANAEMIA [None]
  - GLOMERULAR FILTRATION RATE DECREASED [None]
  - HAEMATEMESIS [None]
  - LEUKOCYTURIA [None]
  - NEPHRITIS INTERSTITIAL [None]
  - PYREXIA [None]
  - PYURIA [None]
  - RED BLOOD CELL SEDIMENTATION RATE INCREASED [None]
  - RENAL FAILURE ACUTE [None]
